FAERS Safety Report 21871145 (Version 5)
Quarter: 2023Q1

REPORT INFORMATION
  Report Type: Report from Study
  Country: CN (occurrence: None)
  Receive Date: 20230117
  Receipt Date: 20230328
  Transmission Date: 20230418
  Serious: Yes (Hospitalization)
  Sender: FDA-Public Use
  Company Number: CN-ROCHE-3264185

PATIENT
  Age: 54 Year
  Sex: Female
  Weight: 58 kg

DRUGS (3)
  1. TRASTUZUMAB [Suspect]
     Active Substance: TRASTUZUMAB
     Indication: Breast cancer
     Dosage: INJECTION
     Route: 042
     Dates: start: 20210413, end: 20221224
  2. PYROTINIB MALEATE [Suspect]
     Active Substance: PYROTINIB MALEATE
     Indication: Breast cancer
     Route: 048
     Dates: start: 20210413, end: 20221224
  3. DOCETAXEL [Suspect]
     Active Substance: DOCETAXEL
     Indication: Breast cancer
     Route: 042
     Dates: start: 20210413, end: 20220701

REACTIONS (1)
  - Tinea pedis [Recovered/Resolved]

NARRATIVE: CASE EVENT DATE: 20221217
